FAERS Safety Report 24016771 (Version 1)
Quarter: 2024Q2

REPORT INFORMATION
  Report Type: Report from Study
  Country: US (occurrence: US)
  Receive Date: 20240626
  Receipt Date: 20240626
  Transmission Date: 20240716
  Serious: Yes (Hospitalization, Other)
  Sender: FDA-Public Use
  Company Number: US-JNJFOC-20150913696

PATIENT
  Age: 54 Year
  Sex: Male
  Weight: 163.44 kg

DRUGS (3)
  1. REMICADE [Suspect]
     Active Substance: INFLIXIMAB
     Indication: Psoriasis
     Route: 041
     Dates: start: 20140317, end: 20141103
  2. STELARA [Suspect]
     Active Substance: USTEKINUMAB
     Indication: Psoriasis
     Route: 058
     Dates: start: 20130326, end: 20130423
  3. METHOTREXATE [Suspect]
     Active Substance: METHOTREXATE
     Indication: Product used for unknown indication
     Route: 065

REACTIONS (13)
  - Costochondritis [Recovered/Resolved]
  - Peptic ulcer [Recovered/Resolved]
  - Bacterial prostatitis [Unknown]
  - Acute kidney injury [Unknown]
  - Subcutaneous abscess [Unknown]
  - Cellulitis [Unknown]
  - Headache [Unknown]
  - Skin candida [Unknown]
  - Oesophagitis [Unknown]
  - Gastritis [Unknown]
  - Oral candidiasis [Unknown]
  - Pharyngitis streptococcal [Unknown]
  - Urinary tract infection [Unknown]

NARRATIVE: CASE EVENT DATE: 20150908
